FAERS Safety Report 19007793 (Version 1)
Quarter: 2021Q1

REPORT INFORMATION
  Report Type: Spontaneous
  Country: CH (occurrence: CH)
  Receive Date: 20210315
  Receipt Date: 20210315
  Transmission Date: 20210420
  Serious: Yes (Hospitalization)
  Sender: FDA-Public Use
  Company Number: CH-PFIZER INC-2021232786

PATIENT
  Age: 58 Year
  Sex: Male

DRUGS (10)
  1. CALCIMAGON D3 [Concomitant]
     Active Substance: CALCIUM\CHOLECALCIFEROL
     Dosage: UNK
  2. ATORVASTATIN [Concomitant]
     Active Substance: ATORVASTATIN
     Indication: HYPERCHOLESTEROLAEMIA
     Dosage: 40 MG
     Route: 048
  3. NEXIUM I.V. [Concomitant]
     Active Substance: ESOMEPRAZOLE SODIUM
     Indication: DYSPEPSIA
     Dosage: 20 MG
  4. ASPIRIN CARDIO [Concomitant]
     Active Substance: ASPIRIN
     Indication: BLUE TOE SYNDROME
     Dosage: 100 MG
     Route: 048
     Dates: start: 202008
  5. SYMBICORT [Concomitant]
     Active Substance: BUDESONIDE\FORMOTEROL FUMARATE DIHYDRATE
     Dosage: UNK
  6. LORLATINIB [Suspect]
     Active Substance: LORLATINIB
     Indication: LUNG ADENOCARCINOMA
     Dosage: UNK
     Dates: end: 202012
  7. BACTRIM [Concomitant]
     Active Substance: SULFAMETHOXAZOLE\TRIMETHOPRIM
     Dosage: UNK
     Dates: start: 202010
  8. TEMESTA [LORAZEPAM] [Concomitant]
     Active Substance: LORAZEPAM
     Dosage: 1 MG
  9. PREDNISON [Concomitant]
     Active Substance: PREDNISONE
     Dosage: UNK
     Dates: start: 202008
  10. ZESTRIL [Concomitant]
     Active Substance: LISINOPRIL
     Dosage: 10 MG

REACTIONS (1)
  - Cardiac failure [Recovered/Resolved]

NARRATIVE: CASE EVENT DATE: 202012
